FAERS Safety Report 8543538-8 (Version None)
Quarter: 2012Q2

REPORT INFORMATION
  Report Type: 
  Country: None (occurrence: None)
  Receive Date: 20120412
  Receipt Date: 20090508
  Transmission Date: 20120825
  Serious: Yes (Other)
  Sender: FDA-Public Use
  Company Number: PHEH2007US04858

PATIENT
  Sex: Female

DRUGS (3)
  1. ZOMETA [Suspect]
     Indication: RESORPTION BONE INCREASED
     Dosage: QMO
  2. AREDIA [Suspect]
     Indication: BONE DENSITY DECREASED
     Dosage: QMO
  3. CHEMOTHERAPEUTICS NOS (NO INGREDIENTS/SUBSTANCES) [Concomitant]

REACTIONS (7)
  - OSTEONECROSIS [None]
  - TOOTH EXTRACTION [None]
  - ANXIETY [None]
  - OSTEOMYELITIS [None]
  - PAIN [None]
  - DEBRIDEMENT [None]
  - SWELLING [None]
